FAERS Safety Report 10488872 (Version 2)
Quarter: 2014Q4

REPORT INFORMATION
  Report Type: Report from Study
  Country: CA (occurrence: CA)
  Receive Date: 20141002
  Receipt Date: 20141002
  Transmission Date: 20150528
  Serious: Yes (Other)
  Sender: FDA-Public Use
  Company Number: CA-JNJFOC-20140910015

PATIENT
  Age: 25 Year
  Sex: Female
  Weight: 57 kg

DRUGS (2)
  1. HYDROCORTISONE. [Concomitant]
     Active Substance: HYDROCORTISONE
     Indication: PREMEDICATION
     Route: 042
     Dates: start: 20140610
  2. REMICADE [Suspect]
     Active Substance: INFLIXIMAB
     Indication: CROHN^S DISEASE
     Route: 042
     Dates: start: 20140610

REACTIONS (3)
  - Cystitis [Unknown]
  - Bartholin^s cyst [Unknown]
  - Vaginal abscess [Unknown]

NARRATIVE: CASE EVENT DATE: 20140905
